FAERS Safety Report 4742066-5 (Version None)
Quarter: 2005Q3

REPORT INFORMATION
  Report Type: 
  Country: None (occurrence: None)
  Receive Date: 20050810
  Receipt Date: 20050727
  Transmission Date: 20060218
  Serious: Yes (Death)
  Sender: FDA-Public Use
  Company Number: 2005S1006256

PATIENT
  Age: 66 Year
  Sex: Male

DRUGS (5)
  1. FENTANYL [Suspect]
     Indication: LUNG NEOPLASM MALIGNANT
     Dosage: 50 MCG/HR; TDER
     Dates: start: 20050713, end: 20050713
  2. FENTANYL [Suspect]
     Indication: PAIN
     Dosage: 50 MCG/HR; TDER
     Dates: start: 20050713, end: 20050713
  3. LORAZEPAM [Concomitant]
  4. INSULIN [Concomitant]
  5. MORPHINE SULFATE [Concomitant]

REACTIONS (1)
  - DEATH [None]
